FAERS Safety Report 23952939 (Version 2)
Quarter: 2024Q2

REPORT INFORMATION
  Report Type: Report from Study
  Country: US (occurrence: US)
  Receive Date: 20240608
  Receipt Date: 20240611
  Transmission Date: 20240716
  Serious: Yes (Hospitalization)
  Sender: FDA-Public Use
  Company Number: US-ABBVIE-5788070

PATIENT
  Age: 55 Year
  Sex: Female
  Weight: 59.874 kg

DRUGS (4)
  1. VENCLEXTA [Suspect]
     Active Substance: VENETOCLAX
     Indication: Mantle cell lymphoma
     Dosage: FOUR 100 MG TABLETS,?FORM STRENGTH: 100 MILLIGRAM
     Route: 048
     Dates: start: 202007
  2. CALQUENCE [Concomitant]
     Active Substance: ACALABRUTINIB
     Indication: Mantle cell lymphoma
     Route: 048
     Dates: start: 202007
  3. RITUXAN [Suspect]
     Active Substance: RITUXIMAB
     Indication: Mantle cell lymphoma
     Dosage: ONCE WEEKLY FOR A TOTAL OF FOUR WEEKS
     Route: 048
     Dates: start: 202008
  4. RITUXAN [Suspect]
     Active Substance: RITUXIMAB
     Indication: Mantle cell lymphoma
     Dosage: ONCE WEEKLY FOR A TOTAL OF FOUR WEEKS.
     Route: 048
     Dates: start: 202401

REACTIONS (3)
  - COVID-19 [Recovered/Resolved]
  - Abdominal pain [Not Recovered/Not Resolved]
  - Off label use [Unknown]

NARRATIVE: CASE EVENT DATE: 20200701
